FAERS Safety Report 4948779-4 (Version None)
Quarter: 2006Q1

REPORT INFORMATION
  Report Type: 
  Country: None (occurrence: None)
  Receive Date: 20060315
  Receipt Date: 20060223
  Transmission Date: 20060701
  Serious: Yes (Other)
  Sender: FDA-Public Use
  Company Number: USA0510111306

PATIENT
  Age: 76 Year
  Sex: Male
  Weight: 72.6 kg

DRUGS (17)
  1. FORTEO [Suspect]
     Dates: start: 20050901
  2. FORTEO PEN, 250MCG/ML (3ML) (FORTEO PEN 250 MCG/ML (3ML)) PEN, DISPOSA [Concomitant]
  3. ACTOS /USA/ (PIOGLITAZONE HYDROCHLORIDE) [Concomitant]
  4. COUMADIN [Concomitant]
  5. METFORMIN HCL [Concomitant]
  6. GLYBURIDE [Concomitant]
  7. HYZAAR [Concomitant]
  8. INDERAL LA [Concomitant]
  9. NIFEDIPINE [Concomitant]
  10. POTASSIUM (POTASSIUM) [Concomitant]
  11. ASPIRIN [Concomitant]
  12. TRANSDERM-NITRO (GLYCERYL TRINITRATE) PATCH [Concomitant]
  13. CRESTOR [Concomitant]
  14. FOLIC ACID [Concomitant]
  15. VITAMIN E [Concomitant]
  16. ADVIL [Concomitant]
  17. OSCAL 500-D (CALCIUM, COLECALCIFEROL) [Concomitant]

REACTIONS (2)
  - INTERNATIONAL NORMALISED RATIO INCREASED [None]
  - PHARMACEUTICAL PRODUCT COMPLAINT [None]
